FAERS Safety Report 5130413-4 (Version None)
Quarter: 2006Q4

REPORT INFORMATION
  Report Type: 
  Country: None (occurrence: None)
  Receive Date: 20061017
  Receipt Date: 20061017
  Transmission Date: 20070319
  Serious: Yes (Hospitalization)
  Sender: FDA-Public Use
  Company Number: None

PATIENT
  Age: 66 Year
  Sex: Female
  Weight: 85.5 kg

DRUGS (1)
  1. PENTAZOCINE LACTATE [Suspect]
     Dosage: #28 TABLETS, 3 DAY PO
     Route: 048

REACTIONS (30)
  - AMNESIA [None]
  - APTYALISM [None]
  - BACK PAIN [None]
  - BASAL CELL CARCINOMA [None]
  - CONSTIPATION [None]
  - DEPRESSED MOOD [None]
  - DEPRESSION [None]
  - DIABETES MELLITUS [None]
  - DRUG LEVEL BELOW THERAPEUTIC [None]
  - DYSPEPSIA [None]
  - DYSPNOEA [None]
  - DYSURIA [None]
  - FATIGUE [None]
  - GASTROOESOPHAGEAL REFLUX DISEASE [None]
  - HYPERLIPIDAEMIA [None]
  - HYPERTENSION [None]
  - HYPERURICAEMIA [None]
  - INSOMNIA [None]
  - MIDDLE INSOMNIA [None]
  - NASAL DISCOMFORT [None]
  - OVERDOSE [None]
  - PAIN [None]
  - RENAL FAILURE [None]
  - ROTATOR CUFF SYNDROME [None]
  - SOMNOLENCE [None]
  - SUICIDE ATTEMPT [None]
  - TREATMENT NONCOMPLIANCE [None]
  - URGE INCONTINENCE [None]
  - URINARY TRACT INFECTION [None]
  - URINE LEUKOCYTE ESTERASE POSITIVE [None]
